FAERS Safety Report 17307545 (Version 1)
Quarter: 2020Q1

REPORT INFORMATION
  Report Type: Spontaneous
  Country: BR (occurrence: BR)
  Receive Date: 20200123
  Receipt Date: 20200123
  Transmission Date: 20200409
  Serious: Yes (Other)
  Sender: FDA-Public Use
  Company Number: BR-BAYER-2019-217925

PATIENT
  Age: 37 Year
  Sex: Female

DRUGS (4)
  1. MIRENA [Suspect]
     Active Substance: LEVONORGESTREL
     Indication: INTRAUTERINE CONTRACEPTION
  2. MIRENA [Suspect]
     Active Substance: LEVONORGESTREL
     Indication: CONTRACEPTION
     Dosage: 20 MCG/24HR, CONT
     Route: 015
     Dates: start: 201709
  3. LEVOID [Concomitant]
     Active Substance: LEVOTHYROXINE
     Indication: HYPOTHYROIDISM
     Dosage: 62 MG
     Route: 048
     Dates: start: 2015
  4. LEVOID [Concomitant]
     Active Substance: LEVOTHYROXINE
     Indication: HYPOTHYROIDISM
     Dosage: 112 MCG/24HR, QD

REACTIONS (8)
  - Haemorrhage in pregnancy [Not Recovered/Not Resolved]
  - Drug ineffective [None]
  - Post abortion haemorrhage [Not Recovered/Not Resolved]
  - Abortion spontaneous [None]
  - Nausea [None]
  - Device breakage [None]
  - Abdominal pain [Not Recovered/Not Resolved]
  - Pregnancy with contraceptive device [None]

NARRATIVE: CASE EVENT DATE: 2019
